FAERS Safety Report 14342595 (Version 2)
Quarter: 2018Q1

REPORT INFORMATION
  Report Type: Spontaneous
  Country: US (occurrence: US)
  Receive Date: 20180102
  Receipt Date: 20180126
  Transmission Date: 20180509
  Serious: Yes (Other)
  Sender: FDA-Public Use
  Company Number: US-AKORN PHARMACEUTICALS-2017AKN01513

PATIENT
  Age: 16 Year
  Sex: Female
  Weight: 74.83 kg

DRUGS (5)
  1. EUCRISA [Concomitant]
     Active Substance: CRISABOROLE
     Dosage: UNK, AS NEEDED
  2. MYORISAN [Suspect]
     Active Substance: ISOTRETINOIN
     Indication: ACNE
     Dosage: 20 MG, 1X/DAY
     Route: 048
     Dates: start: 20170125, end: 201707
  3. MYORISAN [Suspect]
     Active Substance: ISOTRETINOIN
     Indication: ACNE
     Dosage: 40 MG, 1X/DAY
     Route: 048
     Dates: start: 20161219, end: 201701
  4. MYORISAN [Suspect]
     Active Substance: ISOTRETINOIN
     Dosage: 20 MG, 2X/DAY
     Route: 048
     Dates: start: 20170731, end: 20171221
  5. ORTHO TRI CYCLEN [Concomitant]
     Active Substance: ETHINYL ESTRADIOL\NORGESTIMATE
     Dosage: UNK, 1X/DAY

REACTIONS (4)
  - Off label use [Recovered/Resolved]
  - Depression [Recovering/Resolving]
  - Unevaluable event [Unknown]
  - Mood altered [Recovered/Resolved]

NARRATIVE: CASE EVENT DATE: 20161219
